FAERS Safety Report 4294372-9 (Version None)
Quarter: 2004Q1

REPORT INFORMATION
  Report Type: 
  Country: None (occurrence: None)
  Receive Date: 20040211
  Receipt Date: 20031229
  Transmission Date: 20041129
  Serious: Yes (Disabling)
  Sender: FDA-Public Use
  Company Number: JP-BRISTOL-MYERS SQUIBB COMPANY-12468112

PATIENT
  Age: 49 Year
  Sex: Female

DRUGS (7)
  1. BRIPLATIN [Suspect]
     Indication: OVARIAN CANCER
     Dosage: INITIAL DOSE: 23-JUN-2003
     Route: 013
     Dates: start: 20031107, end: 20031107
  2. BRIPLATIN [Suspect]
     Indication: UTERINE CANCER
     Dosage: INITIAL DOSE: 23-JUN-2003
     Route: 013
     Dates: start: 20031107, end: 20031107
  3. BRIPLATIN [Suspect]
     Indication: METASTASES TO LYMPH NODES
     Dosage: INITIAL DOSE: 23-JUN-2003
     Route: 013
     Dates: start: 20031107, end: 20031107
  4. GASTER [Concomitant]
     Route: 042
     Dates: start: 20031107, end: 20031110
  5. KYTRIL [Concomitant]
     Route: 042
     Dates: start: 20031107, end: 20031109
  6. LASIX [Concomitant]
     Route: 042
     Dates: start: 20031107, end: 20031107
  7. RINDERON [Concomitant]
     Route: 042
     Dates: start: 20031107, end: 20031107

REACTIONS (1)
  - RENAL FAILURE ACUTE [None]
